FAERS Safety Report 9439889 (Version 3)
Quarter: 2014Q1

REPORT INFORMATION
  Report Type: Spontaneous
  Country: US (occurrence: US)
  Receive Date: 20130805
  Receipt Date: 20140124
  Transmission Date: 20141002
  Serious: No
  Sender: FDA-Public Use
  Company Number: US-009507513-1307USA016807

PATIENT
  Sex: Female

DRUGS (19)
  1. SAPHRIS [Suspect]
     Indication: BIPOLAR DISORDER
     Dosage: 10 MG, BID
     Route: 060
     Dates: start: 201107, end: 201307
  2. SAPHRIS [Suspect]
     Dosage: UNK
  3. SAPHRIS [Suspect]
     Dosage: UNK
  4. SAPHRIS [Suspect]
     Dosage: UNK
  5. SAPHRIS [Suspect]
     Dosage: UNK
  6. AMANTADINE HYDROCHLORIDE [Concomitant]
     Dosage: 100 MG, BID
  7. GABAPENTIN [Concomitant]
     Dosage: 300 MG, TID
  8. TRILAFON [Concomitant]
     Dosage: 2 MG, TID
  9. ZOLOFT [Concomitant]
     Dosage: 50 MG, QD
  10. ZOLOFT [Concomitant]
     Dosage: UNK
  11. LEVOTHYROXINE SODIUM [Concomitant]
  12. SERTRALINE HYDROCHLORIDE [Concomitant]
  13. ENALAPRIL MALEATE [Concomitant]
  14. BENADRYL [Concomitant]
  15. INSULIN [Concomitant]
  16. CALCIUM CITRATE [Concomitant]
  17. CHOLECALCIFEROL [Concomitant]
  18. ALPHAGAN [Concomitant]
  19. GLYCERIN (+) MENTHOL (+) XYLITOL/XYLITOL [Concomitant]

REACTIONS (8)
  - Oedema mouth [Recovered/Resolved]
  - Neck mass [Not Recovered/Not Resolved]
  - Product taste abnormal [Unknown]
  - Tongue spasm [Recovered/Resolved]
  - Lip swelling [Recovered/Resolved]
  - Dysphagia [Recovered/Resolved]
  - Dysgeusia [Recovered/Resolved]
  - Oral disorder [Recovering/Resolving]
